FAERS Safety Report 6312697-X (Version None)
Quarter: 2009Q3

REPORT INFORMATION
  Report Type: 
  Country: None (occurrence: None)
  Receive Date: 20090814
  Receipt Date: 20090814
  Transmission Date: 20100115
  Serious: No
  Sender: FDA-Public Use
  Company Number: None

PATIENT
  Age: 27 Year
  Sex: Male

DRUGS (1)
  1. THYMOGLOBULIN [Suspect]

REACTIONS (3)
  - INFUSION SITE PAIN [None]
  - MEDICATION ERROR [None]
  - PRODUCT FORMULATION ISSUE [None]
